FAERS Safety Report 10306305 (Version 2)
Quarter: 2014Q3

REPORT INFORMATION
  Report Type: Spontaneous
  Country: SE (occurrence: SE)
  Receive Date: 20140715
  Receipt Date: 20140728
  Transmission Date: 20150326
  Serious: Yes (Other)
  Sender: FDA-Public Use
  Company Number: SE-B.I. PHARMACEUTICALS,INC./RIDGEFIELD-2014-BI-31740SW

PATIENT
  Sex: Female

DRUGS (17)
  1. CRESTOR [Concomitant]
     Active Substance: ROSUVASTATIN CALCIUM
     Indication: HYPERLIPIDAEMIA
     Dosage: 10 MG
     Route: 065
  2. METFORMIN [Concomitant]
     Active Substance: METFORMIN HYDROCHLORIDE
     Indication: BLOOD GLUCOSE INCREASED
     Dosage: FORMULATION: FILM-COATED TABLET, 2 TABLETS IN THE MORNING, 2 TABLETS AT LUNCH AND 1 TABLET AT DINNER
     Route: 065
  3. BISOPROLOL [Concomitant]
     Active Substance: BISOPROLOL
     Indication: CARDIAC DISORDER
     Dosage: 10 MG
     Route: 065
  4. FOLACIN [Concomitant]
     Active Substance: FOLIC ACID
     Dosage: 1 TABLET IN THE MORNING
     Route: 065
  5. FOLACIN [Concomitant]
     Active Substance: FOLIC ACID
     Dosage: 5 MG
     Route: 065
  6. VICTOZA [Concomitant]
     Active Substance: LIRAGLUTIDE
     Dosage: FORMULATION:SOLUTION FOR INJECTION 6 MG/ML ACCORDING TO ORDINATION
     Route: 065
  7. LOSARSTAD [Concomitant]
     Indication: HYPERTENSION
     Dosage: 50 MG
     Route: 065
  8. ISOPHANE INSULIN [Concomitant]
     Active Substance: INSULIN NOS
     Indication: DIABETES MELLITUS
     Route: 065
  9. BEHEPAN [Concomitant]
     Active Substance: HYDROXOCOBALAMIN
     Indication: VITAMIN B12 ABNORMAL
     Dosage: 1 MG
     Route: 065
  10. ACETYLCYSTEIN [Concomitant]
     Active Substance: ACETYLCYSTEINE
     Route: 065
  11. DIGOXIN. [Concomitant]
     Active Substance: DIGOXIN
     Indication: CARDIAC DISORDER
     Dosage: 0.25 MG
     Route: 065
  12. IMDUR [Concomitant]
     Active Substance: ISOSORBIDE MONONITRATE
     Indication: CARDIOVASCULAR EVENT PROPHYLAXIS
     Dosage: NO. OF APPLICATION 1.5 IN 1 DAY-90MG
     Route: 065
  13. PANODIL [Concomitant]
     Active Substance: ACETAMINOPHEN
     Dosage: FORMULATION: FILM-COATED TABLET,
     Route: 065
  14. PRADAXA [Suspect]
     Active Substance: DABIGATRAN ETEXILATE MESYLATE
     Indication: PRODUCT USED FOR UNKNOWN INDICATION
     Dosage: 300 MG
     Route: 065
     Dates: start: 2013
  15. NOVORAPID [Concomitant]
     Active Substance: INSULIN ASPART
     Dosage: FORMULATION: SOLUTION FOR INJECTION, STRENGTH: 100 E/ML
     Route: 065
  16. PREDNISOLON [Concomitant]
     Active Substance: PREDNISOLONE
     Dosage: 2.5 MG
     Route: 065
  17. SPIROLANOLAKTON [Concomitant]
     Indication: DIURETIC THERAPY
     Dosage: 25 MG
     Route: 065

REACTIONS (3)
  - Fatigue [Unknown]
  - Abdominal pain upper [Not Recovered/Not Resolved]
  - Major depression [Unknown]

NARRATIVE: CASE EVENT DATE: 2014
